FAERS Safety Report 11936789 (Version 1)
Quarter: 2016Q1

REPORT INFORMATION
  Report Type: Spontaneous
  Country: CN (occurrence: CN)
  Receive Date: 20160121
  Receipt Date: 20160121
  Transmission Date: 20160526
  Serious: Yes (Other)
  Sender: FDA-Public Use
  Company Number: CN-PFIZER INC-2016031827

PATIENT
  Age: 98 Year
  Sex: Male
  Weight: 65 kg

DRUGS (3)
  1. LIPITOR [Suspect]
     Active Substance: ATORVASTATIN CALCIUM
     Indication: ARTERIOSCLEROSIS
  2. LIPITOR [Suspect]
     Active Substance: ATORVASTATIN CALCIUM
     Indication: ARTERIOSCLEROSIS
     Dosage: 20 MG, 1X/DAY
     Route: 048
     Dates: start: 20150307, end: 20150322
  3. TIENAM [Concomitant]
     Active Substance: CILASTATIN SODIUM\IMIPENEM
     Indication: LUNG INFECTION
     Dosage: 0.5 G, 3X/DAY
     Route: 041
     Dates: start: 20150318, end: 20150323

REACTIONS (4)
  - Transaminases increased [Recovering/Resolving]
  - Hepatic lesion [Unknown]
  - Cholestasis [Unknown]
  - Liver injury [Unknown]

NARRATIVE: CASE EVENT DATE: 20150318
